FAERS Safety Report 5068468-8 (Version None)
Quarter: 2006Q3

REPORT INFORMATION
  Report Type: 
  Country: None (occurrence: None)
  Receive Date: 20060802
  Receipt Date: 20051013
  Transmission Date: 20061208
  Serious: Yes (Hospitalization, Other)
  Sender: FDA-Public Use
  Company Number: US-BRISTOL-MYERS SQUIBB COMPANY-13143797

PATIENT
  Age: 70 Year
  Sex: Female

DRUGS (7)
  1. ERBITUX [Suspect]
     Indication: COLON CANCER METASTATIC
     Dosage: 11-OCT-05 (4TH) TREATMENT HELD. THERAPY START DATE 17-JUN-05.
     Route: 042
     Dates: start: 20050101, end: 20050101
  2. COUMADIN [Suspect]
     Indication: DEEP VEIN THROMBOSIS
     Route: 048
     Dates: start: 20050805, end: 20051011
  3. CAMPTOSAR [Concomitant]
     Indication: COLON CANCER METASTATIC
  4. PERCOCET [Concomitant]
  5. VITAMINS [Concomitant]
  6. IRON [Concomitant]
  7. POTASSIUM [Concomitant]

REACTIONS (5)
  - EPISTAXIS [None]
  - HAEMOGLOBIN ABNORMAL [None]
  - INTERNATIONAL NORMALISED RATIO INCREASED [None]
  - MALAISE [None]
  - RASH [None]
